FAERS Safety Report 15550784 (Version 4)
Quarter: 2018Q4

REPORT INFORMATION
  Report Type: Report from Study
  Country: DE (occurrence: DE)
  Receive Date: 20181025
  Receipt Date: 20181212
  Transmission Date: 20190205
  Serious: Yes (Other)
  Sender: FDA-Public Use
  Company Number: DE-PFIZER INC-2018433963

PATIENT
  Sex: Female
  Weight: 54 kg

DRUGS (5)
  1. EXEMESTANE. [Suspect]
     Active Substance: EXEMESTANE
     Indication: BREAST CANCER
     Dosage: 25 MG, 1X/DAY (QD)
     Route: 048
     Dates: start: 20180505
  2. NALOXONE HYDROCHLORIDE/TILIDINE HYDROCHLORIDE [Suspect]
     Active Substance: NALOXONE HYDROCHLORIDE\TILIDINE HYDROCHLORIDE
     Indication: CONSTIPATION
     Dosage: 200 MG, 1X/DAY (QD)
     Route: 048
     Dates: start: 20180608
  3. LETROZOLE. [Suspect]
     Active Substance: LETROZOLE
     Indication: BREAST CANCER
     Dosage: 2.5 MG, 1X/DAY (QD)
     Route: 048
     Dates: start: 20180216, end: 20180504
  4. HYDROMORPHONE [Suspect]
     Active Substance: HYDROMORPHONE
     Route: 065
  5. KISQALI [Suspect]
     Active Substance: RIBOCICLIB
     Indication: BREAST CANCER
     Dosage: 600 MG, CYCLIC (DAY1 - DAY21)
     Route: 048
     Dates: start: 20180216

REACTIONS (10)
  - Nausea [Not Recovered/Not Resolved]
  - Depression [Recovering/Resolving]
  - Dysphagia [Not Recovered/Not Resolved]
  - Pain in extremity [Not Recovered/Not Resolved]
  - Myalgia [Not Recovered/Not Resolved]
  - Hyperhidrosis [Not Recovered/Not Resolved]
  - Diarrhoea [Recovered/Resolved]
  - Musculoskeletal pain [Not Recovered/Not Resolved]
  - Pruritus [Recovered/Resolved]
  - Constipation [Recovered/Resolved]

NARRATIVE: CASE EVENT DATE: 20150525
